FAERS Safety Report 22387473 (Version 1)
Quarter: 2023Q2

REPORT INFORMATION
  Report Type: Report from Study
  Country: US (occurrence: US)
  Receive Date: 20230531
  Receipt Date: 20230531
  Transmission Date: 20230722
  Serious: Yes (Hospitalization)
  Sender: FDA-Public Use
  Company Number: US-GILEAD-2023-0629396

PATIENT
  Age: 61 Year
  Sex: Male

DRUGS (1)
  1. EMTRICITABINE\TENOFOVIR [Suspect]
     Active Substance: EMTRICITABINE\TENOFOVIR
     Indication: Prophylaxis against HIV infection
     Dosage: 225 MG, QD
     Route: 048
     Dates: start: 202101

REACTIONS (3)
  - Surgery [Recovered/Resolved]
  - Cough [Not Recovered/Not Resolved]
  - Product dose omission issue [Not Recovered/Not Resolved]

NARRATIVE: CASE EVENT DATE: 20230508
